FAERS Safety Report 8246409-X (Version None)
Quarter: 2012Q1

REPORT INFORMATION
  Report Type: 
  Country: None (occurrence: None)
  Receive Date: 20120330
  Receipt Date: 20120322
  Transmission Date: 20120608
  Serious: Yes (Other)
  Sender: FDA-Public Use
  Company Number: DE-GENZYME-MOZO-1000547

PATIENT
  Sex: Male
  Weight: 90 kg

DRUGS (2)
  1. MOZOBIL [Suspect]
     Indication: NON-HODGKIN'S LYMPHOMA
  2. MOZOBIL [Suspect]
     Indication: HAEMATOPOIETIC STEM CELL MOBILISATION
     Dosage: UNK
     Route: 065

REACTIONS (1)
  - PROCEDURAL COMPLICATION [None]
